FAERS Safety Report 10990498 (Version 2)
Quarter: 2015Q3

REPORT INFORMATION
  Report Type: Spontaneous
  Country: US (occurrence: None)
  Receive Date: 20150330
  Receipt Date: 20150630
  Transmission Date: 20151125
  Serious: Yes (Hospitalization, Other)
  Sender: FDA-Public Use
  Company Number: US-2015-10824

PATIENT
  Age: 49 Year
  Sex: Female
  Weight: 76 kg

DRUGS (21)
  1. ABILIFY MAINTENA [Suspect]
     Active Substance: ARIPIPRAZOLE
     Indication: BIPOLAR DISORDER
     Dosage: 400 MG MILLIGRAM (S) IM (DEPOT)
     Route: 030
     Dates: start: 20131023, end: 20140811
  2. POTASSIUM CHLORIDE. [Concomitant]
     Active Substance: POTASSIUM CHLORIDE
  3. GEODON /01487002/ (ZIPRASIDONE HYDROCHLORIDE) [Concomitant]
  4. BENZTROPINE (BENZATROPINE MESILATE) [Concomitant]
     Active Substance: BENZTROPINE MESYLATE
  5. TRAZODONE [Suspect]
     Active Substance: TRAZODONE HYDROCHLORIDE
     Indication: PRODUCT USED FOR UNKNOWN INDICATION
     Route: 048
  6. TOPIRAMATE. [Concomitant]
     Active Substance: TOPIRAMATE
  7. CLONAZEPAM. [Concomitant]
     Active Substance: CLONAZEPAM
  8. LYRICA [Concomitant]
     Active Substance: PREGABALIN
  9. SUDAFED /00076302/ (PSEUDOEPHEDRINE HYDROCHLORIDE) [Concomitant]
  10. PROVENTIL HFA /00139501/ (SALBUTAMOL) [Concomitant]
  11. AMBIEN [Suspect]
     Active Substance: ZOLPIDEM TARTRATE
     Indication: PRODUCT USED FOR UNKNOWN INDICATION
     Route: 048
  12. EFFEXOR [Concomitant]
     Active Substance: VENLAFAXINE HYDROCHLORIDE
  13. LITHIUM. [Concomitant]
     Active Substance: LITHIUM
  14. ARIPIPRAZOLE (ARIPIPRAZOLE) TABLET, 2MG [Suspect]
     Active Substance: ARIPIPRAZOLE
     Indication: BIPOLAR DISORDER
     Route: 048
     Dates: start: 20140825
  15. CLONIDINE. [Concomitant]
     Active Substance: CLONIDINE
  16. CELEBREX [Concomitant]
     Active Substance: CELECOXIB
  17. FLEXERIL /00428402/ (CYCLOBENZAPRINE HYDROCHLORIDE) [Concomitant]
  18. ATARAX [Concomitant]
     Active Substance: HYDROXYZINE\HYDROXYZINE HYDROCHLORIDE
  19. ALPRAZOLAM. [Concomitant]
     Active Substance: ALPRAZOLAM
  20. SYNTHROID [Concomitant]
     Active Substance: LEVOTHYROXINE SODIUM
  21. PERPHENAZINE. [Concomitant]
     Active Substance: PERPHENAZINE

REACTIONS (5)
  - Overdose [None]
  - Treatment noncompliance [None]
  - Product use issue [None]
  - Drug ineffective [None]
  - Suicide attempt [None]
